FAERS Safety Report 19138203 (Version 1)
Quarter: 2021Q2

REPORT INFORMATION
  Report Type: Spontaneous
  Country: DE (occurrence: CN)
  Receive Date: 20210414
  Receipt Date: 20210414
  Transmission Date: 20210717
  Serious: Yes (Other)
  Sender: FDA-Public Use
  Company Number: CN-ELI_LILLY_AND_COMPANY-CN202104004902

PATIENT
  Age: 75 Year
  Sex: Male
  Weight: 55 kg

DRUGS (4)
  1. SODIUM CHLORIDE. [Concomitant]
     Active Substance: SODIUM CHLORIDE
     Indication: PRODUCT PREPARATION ISSUE
     Dosage: 250 ML, DAILY
     Route: 041
     Dates: start: 20210224, end: 20210224
  2. GLUCOSE INJECTION MP [Concomitant]
     Indication: PRODUCT PREPARATION ISSUE
     Dosage: 250 ML, DAILY
     Route: 041
     Dates: start: 20210209, end: 20210209
  3. ERBITUX [Suspect]
     Active Substance: CETUXIMAB
     Indication: COLON CANCER
     Dosage: 180 ML, DAILY
     Route: 041
     Dates: start: 20210224, end: 20210224
  4. OXALIPLATIN. [Suspect]
     Active Substance: OXALIPLATIN
     Indication: COLON CANCER
     Dosage: 150 MG, DAILY
     Route: 041
     Dates: start: 20210209

REACTIONS (1)
  - Transaminases increased [Recovering/Resolving]

NARRATIVE: CASE EVENT DATE: 20210226
